FAERS Safety Report 12638644 (Version 1)
Quarter: 2016Q3

REPORT INFORMATION
  Report Type: Spontaneous
  Country: US (occurrence: US)
  Receive Date: 20160809
  Receipt Date: 20160809
  Transmission Date: 20161109
  Serious: Yes (Other)
  Sender: FDA-Public Use
  Company Number: US-BAYER-2016-152410

PATIENT
  Age: 74 Year
  Sex: Male
  Weight: 77.98 kg

DRUGS (5)
  1. MEXSANA MEDICATED [Suspect]
     Active Substance: STARCH, CORN
     Indication: HYPERHIDROSIS
     Dosage: 1 DF,
     Route: 061
     Dates: start: 2006
  2. MEXSANA MEDICATED [Suspect]
     Active Substance: STARCH, CORN
     Indication: SKIN ODOUR ABNORMAL
  3. BAYER LOW DOSE [Suspect]
     Active Substance: ASPIRIN
     Indication: CEREBROVASCULAR ACCIDENT PROPHYLAXIS
     Dosage: UNK
  4. PLAVIX [Concomitant]
     Active Substance: CLOPIDOGREL BISULFATE
  5. VALSARTAN. [Concomitant]
     Active Substance: VALSARTAN

REACTIONS (3)
  - Cerebrovascular accident [None]
  - Off label use [None]
  - Product use issue [None]

NARRATIVE: CASE EVENT DATE: 2006
